FAERS Safety Report 8456357-8 (Version None)
Quarter: 2012Q2

REPORT INFORMATION
  Report Type: 
  Country: None (occurrence: None)
  Receive Date: 20120621
  Receipt Date: 20120523
  Transmission Date: 20120825
  Serious: Yes (Other)
  Sender: FDA-Public Use
  Company Number: BE-GLAXOSMITHKLINE-B0804116A

PATIENT
  Sex: Male
  Weight: 68 kg

DRUGS (9)
  1. PLAVIX [Concomitant]
  2. PANTOPRAZOLE [Concomitant]
  3. ASPIRIN [Concomitant]
  4. DIAMICRON [Concomitant]
  5. MEDROL [Concomitant]
  6. WELLBUTRIN [Suspect]
     Indication: PRODUCT USED FOR UNKNOWN INDICATION
     Dosage: 150MG PER DAY
     Route: 065
     Dates: start: 20120401, end: 20120505
  7. SIMVASTATIN [Concomitant]
  8. ALLOPURINOL [Concomitant]
     Dosage: 100MG PER DAY
     Dates: start: 20120301
  9. EMCORETIC [Concomitant]

REACTIONS (4)
  - RASH ERYTHEMATOUS [None]
  - PURPURA [None]
  - RASH MACULAR [None]
  - SYSTEMIC LUPUS ERYTHEMATOSUS [None]
